FAERS Safety Report 17458547 (Version 2)
Quarter: 2020Q2

REPORT INFORMATION
  Report Type: Spontaneous
  Country: JP (occurrence: JP)
  Receive Date: 20200225
  Receipt Date: 20200507
  Transmission Date: 20200713
  Serious: Yes (Death, Life-Threatening, Other)
  Sender: FDA-Public Use
  Company Number: JP-SAKK-2020SA038045AA

PATIENT
  Age: 82 Year
  Sex: Male
  Weight: 47.8 kg

DRUGS (18)
  1. TEARBALANCE [Concomitant]
     Active Substance: HYALURONATE SODIUM
     Indication: XEROPHTHALMIA
     Dosage: SEVERAL DROPS PER DAY
     Route: 047
     Dates: start: 20200204, end: 20200212
  2. OXINORM [ASCORBIC ACID;BETACAROTENE;COPPER;GLYCINE MAX EXTRACT;SELENIU [Concomitant]
     Indication: CANCER PAIN
     Dosage: 1 PACK PRN
     Route: 048
     Dates: start: 20190729, end: 20200212
  3. ROZEREM [Concomitant]
     Active Substance: RAMELTEON
     Indication: INSOMNIA
     Dosage: 1 DF, QD
     Route: 048
     Dates: start: 20190927, end: 20200212
  4. JEVTANA [Suspect]
     Active Substance: CABAZITAXEL
     Indication: HORMONE-REFRACTORY PROSTATE CANCER
     Dosage: 35 MG, 1X
     Route: 041
     Dates: start: 20200206
  5. G LASTA [Concomitant]
     Active Substance: PEGFILGRASTIM
     Indication: BONE MARROW FAILURE
     Route: 065
  6. TAKECAB [Concomitant]
     Active Substance: VONOPRAZAN FUMARATE
     Indication: GASTROINTESTINAL SUBMUCOSAL TUMOUR
     Dosage: 2 DF, QD
     Route: 048
     Dates: start: 20190730, end: 20200212
  7. BETANIS [Concomitant]
     Active Substance: MIRABEGRON
     Indication: HYPERTONIC BLADDER
     Dosage: 1 DF, QD
     Route: 048
     Dates: start: 20190823, end: 20200212
  8. DEXART [Concomitant]
     Active Substance: DEXAMETHASONE SODIUM PHOSPHATE
     Indication: PREMEDICATION
     Dosage: 3.3 MG/DAY
     Route: 065
  9. TAMSULOSIN HYDROCHLORIDE OD [Concomitant]
     Active Substance: TAMSULOSIN HYDROCHLORIDE
     Indication: BENIGN PROSTATIC HYPERPLASIA
     Dosage: 2 DF, QD
     Route: 048
     Dates: start: 20190730, end: 20200212
  10. HEPARINOID [Concomitant]
     Active Substance: CHONDROITIN SULFATE (BOVINE)
     Indication: PEMPHIGUS
     Dosage: SEVERAL TIMES PER DAY
     Route: 065
     Dates: start: 20200210, end: 20200212
  11. FERROUS CITRATE NA [Concomitant]
     Active Substance: SODIUM FERROUS CITRATE
     Indication: IRON DEFICIENCY ANAEMIA
     Dosage: 1 DF, QD
     Route: 048
     Dates: start: 20190730, end: 20200212
  12. DUROTEP [Concomitant]
     Active Substance: FENTANYL
     Indication: CANCER PAIN
     Dosage: 1 SHEET Q3D
     Route: 065
     Dates: start: 20190729, end: 20200213
  13. LYRICA [Concomitant]
     Active Substance: PREGABALIN
     Indication: NEUROPATHY PERIPHERAL
     Dosage: 1 DF, QD
     Route: 048
     Dates: start: 20191116, end: 20200212
  14. CANAGLU [Concomitant]
     Active Substance: CANAGLIFLOZIN
     Indication: DIABETES MELLITUS
     Dosage: 1 DF, QD
     Route: 048
     Dates: start: 20190811, end: 20200212
  15. MAGNESIUM OXIDE. [Concomitant]
     Active Substance: MAGNESIUM OXIDE
     Indication: CONSTIPATION
     Dosage: 1 DF, BID
     Route: 048
     Dates: start: 20190730, end: 20200212
  16. G LASTA [Concomitant]
     Active Substance: PEGFILGRASTIM
     Indication: PREMEDICATION
     Dosage: 3.6 MG, 1X
     Route: 065
     Dates: start: 20200207, end: 20200207
  17. LEUPLIN [Concomitant]
     Active Substance: LEUPROLIDE ACETATE
     Indication: HORMONE-REFRACTORY PROSTATE CANCER
     Dosage: 22.5 MG, 1X
     Route: 065
     Dates: start: 20191217
  18. GRANISETRON [Concomitant]
     Active Substance: GRANISETRON
     Indication: PREMEDICATION
     Dosage: 3 MG/DAY, 1X
     Route: 065
     Dates: start: 20200206

REACTIONS (6)
  - Dyspnoea [Fatal]
  - Atelectasis [Fatal]
  - Cardiac arrest [Fatal]
  - Respiratory failure [Fatal]
  - Cyanosis [Fatal]
  - Bone marrow failure [Not Recovered/Not Resolved]

NARRATIVE: CASE EVENT DATE: 20200213
